FAERS Safety Report 8190049-8 (Version None)
Quarter: 2012Q1

REPORT INFORMATION
  Report Type: 
  Country: None (occurrence: None)
  Receive Date: 20120305
  Receipt Date: 20120227
  Transmission Date: 20120608
  Serious: Yes (Hospitalization, Other)
  Sender: FDA-Public Use
  Company Number: 2009SP020705

PATIENT
  Age: 20 Year
  Sex: Female
  Weight: 83.9154 kg

DRUGS (2)
  1. ACETAMINOPHEN [Concomitant]
  2. NUVARING [Suspect]
     Indication: CONTRACEPTION
     Dosage: VAG
     Route: 067
     Dates: start: 20040622, end: 20061201

REACTIONS (57)
  - HUMERUS FRACTURE [None]
  - DEEP VEIN THROMBOSIS [None]
  - TINEA CRURIS [None]
  - CHEST PAIN [None]
  - CERVICAL DYSPLASIA [None]
  - CONJUNCTIVITIS [None]
  - CONTUSION [None]
  - FALL [None]
  - VAGINAL DISORDER [None]
  - MENORRHAGIA [None]
  - PLEURAL DISORDER [None]
  - CAESAREAN SECTION [None]
  - FATIGUE [None]
  - NAUSEA [None]
  - MATERNAL EXPOSURE DURING PREGNANCY [None]
  - VULVOVAGINITIS TRICHOMONAL [None]
  - ASTHMA [None]
  - CERVICITIS [None]
  - LIMB INJURY [None]
  - PELVIC ADHESIONS [None]
  - WEIGHT INCREASED [None]
  - PULMONARY EMBOLISM [None]
  - INCISION SITE PAIN [None]
  - ROAD TRAFFIC ACCIDENT [None]
  - NO THERAPEUTIC RESPONSE [None]
  - INFLUENZA LIKE ILLNESS [None]
  - BRONCHITIS [None]
  - DYSPNOEA [None]
  - DERMATITIS CONTACT [None]
  - ABORTION SPONTANEOUS [None]
  - TEMPERATURE INTOLERANCE [None]
  - MIGRAINE [None]
  - PREGNANCY WITH CONTRACEPTIVE DEVICE [None]
  - HYPERCHOLESTEROLAEMIA [None]
  - PHARYNGITIS [None]
  - UPPER RESPIRATORY TRACT INFECTION [None]
  - URINARY TRACT INFECTION [None]
  - NECK PAIN [None]
  - FUNGAL INFECTION [None]
  - NECK INJURY [None]
  - ABDOMINAL DISCOMFORT [None]
  - HERPES SIMPLEX [None]
  - VAGINITIS BACTERIAL [None]
  - BACK PAIN [None]
  - ACUTE SINUSITIS [None]
  - INFUSION SITE CYST [None]
  - MUSCULOSKELETAL PAIN [None]
  - ABDOMINAL PAIN [None]
  - SINUS BRADYCARDIA [None]
  - INFUSION SITE SWELLING [None]
  - LACERATION [None]
  - MUSCLE STRAIN [None]
  - ARTHRALGIA [None]
  - PELVIC PAIN [None]
  - MENSTRUATION IRREGULAR [None]
  - TENSION HEADACHE [None]
  - VAGINAL ODOUR [None]
